FAERS Safety Report 7562349-3 (Version None)
Quarter: 2011Q2

REPORT INFORMATION
  Report Type: 
  Country: None (occurrence: None)
  Receive Date: 20110620
  Receipt Date: 20110620
  Transmission Date: 20111010
  Serious: Yes (Other)
  Sender: FDA-Public Use
  Company Number: None

PATIENT
  Sex: Male

DRUGS (1)
  1. REMICADE [Suspect]
     Dosage: AS ABOVE
     Dates: start: 20010301, end: 20110429

REACTIONS (3)
  - ANTINUCLEAR ANTIBODY POSITIVE [None]
  - FATIGUE [None]
  - ARTHROPATHY [None]
